FAERS Safety Report 4978029-4 (Version None)
Quarter: 2006Q2

REPORT INFORMATION
  Report Type: 
  Country: None (occurrence: None)
  Receive Date: 20060420
  Receipt Date: 20050711
  Transmission Date: 20061013
  Serious: Yes (Hospitalization)
  Sender: FDA-Public Use
  Company Number: US-MERCK-0507USA01461

PATIENT
  Age: 47 Year
  Sex: Male
  Weight: 95 kg

DRUGS (2)
  1. VIOXX [Suspect]
     Indication: SYNOVIAL CYST
     Route: 048
     Dates: start: 20020101, end: 20040701
  2. VIOXX [Suspect]
     Indication: SWELLING
     Route: 048
     Dates: start: 20020101, end: 20040701

REACTIONS (4)
  - CEREBROVASCULAR ACCIDENT [None]
  - CHEST PAIN [None]
  - DEPRESSION [None]
  - SLEEP APNOEA SYNDROME [None]
